FAERS Safety Report 6402227-6 (Version None)
Quarter: 2009Q4

REPORT INFORMATION
  Report Type: 
  Country: None (occurrence: None)
  Receive Date: 20091015
  Receipt Date: 20091001
  Transmission Date: 20100525
  Serious: Yes (Other)
  Sender: FDA-Public Use
  Company Number: PHHY2009GB37131

PATIENT
  Sex: Female

DRUGS (3)
  1. CLOZARIL [Suspect]
     Indication: SCHIZOPHRENIA
     Dosage: 50 MG, UNK
     Dates: start: 20050627
  2. CLOZARIL [Suspect]
     Dosage: 200 MG MANE, 450 MG NOCTE
     Route: 048
     Dates: start: 20090701
  3. OLANZAPINE [Concomitant]
     Dosage: 10 MG, UNK
     Route: 048
     Dates: start: 20090701

REACTIONS (3)
  - ANXIETY [None]
  - TACHYCARDIA [None]
  - VENTRICULAR EXTRASYSTOLES [None]
